FAERS Safety Report 9656453 (Version 1)
Quarter: 2013Q4

REPORT INFORMATION
  Report Type: Spontaneous
  Country: SI (occurrence: SI)
  Receive Date: 20131030
  Receipt Date: 20131030
  Transmission Date: 20140711
  Serious: Yes (Death, Life-Threatening, Hospitalization, Other)
  Sender: FDA-Public Use
  Company Number: SI-009507513-1310SVN011659

PATIENT
  Age: 66 Year
  Sex: Female

DRUGS (6)
  1. TEMODAL [Suspect]
     Indication: GLIOBLASTOMA
     Dosage: TOTAL DAILY DOSE: 120 MG
     Route: 048
     Dates: start: 20121128, end: 20121227
  2. KEPPRA [Concomitant]
     Indication: EPILEPSY
     Dosage: UNK, BID
     Route: 048
     Dates: start: 20121024, end: 20130315
  3. EUTHYROX [Concomitant]
     Indication: PAPILLARY THYROID CANCER
     Dosage: UNK
     Route: 048
     Dates: end: 20130315
  4. DIOVAN [Concomitant]
     Dosage: UNK
     Route: 048
     Dates: end: 20130315
  5. MEDROL [Concomitant]
     Indication: BRAIN OEDEMA
     Dosage: UNK
     Route: 048
     Dates: end: 20130315
  6. NEXIUM [Concomitant]
     Dosage: UNK
     Route: 048
     Dates: end: 20130315

REACTIONS (3)
  - Glioblastoma [Fatal]
  - Thrombocytopenia [Recovered/Resolved]
  - Platelet transfusion [Unknown]
